FAERS Safety Report 6283294-X (Version None)
Quarter: 2009Q3

REPORT INFORMATION
  Report Type: 
  Country: None (occurrence: None)
  Receive Date: 20090724
  Receipt Date: 20090716
  Transmission Date: 20100115
  Serious: Yes (Death)
  Sender: FDA-Public Use
  Company Number: JP-PFIZER INC-2009243462

PATIENT
  Age: 75 Year

DRUGS (2)
  1. CELECOX [Suspect]
     Indication: RHEUMATOID ARTHRITIS
     Dosage: 400 MG, UNKNOWN/D
     Route: 048
     Dates: start: 20080519
  2. INDOMETACIN [Concomitant]

REACTIONS (1)
  - PNEUMONIA [None]
